FAERS Safety Report 5891413-X (Version None)
Quarter: 2008Q3

REPORT INFORMATION
  Report Type: 
  Country: None (occurrence: None)
  Receive Date: 20080922
  Receipt Date: 20080910
  Transmission Date: 20090109
  Serious: Yes (Hospitalization)
  Sender: FDA-Public Use
  Company Number: FR-MERCK-0809USA02577

PATIENT
  Age: 93 Year
  Sex: Male

DRUGS (12)
  1. MODURETIC 5-50 [Suspect]
     Indication: HYPERTENSION
     Route: 048
     Dates: end: 20080702
  2. XATRAL [Suspect]
     Indication: BENIGN PROSTATIC HYPERPLASIA
     Route: 048
     Dates: end: 20080703
  3. PERMIXON [Suspect]
     Indication: BENIGN PROSTATIC HYPERPLASIA
     Route: 048
     Dates: end: 20080702
  4. OMEPRAZOLE [Suspect]
     Route: 048
     Dates: end: 20080703
  5. NOCTRAN [Suspect]
     Indication: INSOMNIA
     Route: 048
     Dates: end: 20080702
  6. STILNOX [Suspect]
     Indication: INSOMNIA
     Route: 048
     Dates: end: 20080702
  7. TANAKAN [Suspect]
     Route: 048
     Dates: end: 20080702
  8. CLARITIN [Suspect]
     Indication: RHINITIS ALLERGIC
     Route: 048
     Dates: end: 20080702
  9. OROKEN [Suspect]
     Indication: BRONCHITIS
     Route: 048
     Dates: start: 20080630, end: 20080702
  10. OROCAL D3 [Suspect]
     Route: 048
     Dates: end: 20080702
  11. VASTAREL [Suspect]
     Route: 048
     Dates: end: 20080702
  12. DOLIPRANE [Concomitant]
     Route: 065
     Dates: end: 20080702

REACTIONS (4)
  - CHOLESTASIS [None]
  - GENERAL PHYSICAL HEALTH DETERIORATION [None]
  - LUNG DISORDER [None]
  - RENAL FAILURE [None]
